FAERS Safety Report 4805429-5 (Version None)
Quarter: 2005Q4

REPORT INFORMATION
  Report Type: 
  Country: None (occurrence: None)
  Receive Date: 20051018
  Receipt Date: 20050921
  Transmission Date: 20060501
  Serious: Yes (Life-Threatening, Hospitalization, Disabling)
  Sender: FDA-Public Use
  Company Number: 2004200129FR

PATIENT
  Age: 45 Year
  Sex: Female
  Weight: 60 kg

DRUGS (2)
  1. SULFASALAZINE [Suspect]
     Indication: RHEUMATOID ARTHRITIS
     Dosage: 2 GRAM, ORAL
     Route: 048
     Dates: start: 20031127, end: 20031229
  2. CORTICOSTEROIDS (CORTICOSTEROIDS) [Concomitant]

REACTIONS (44)
  - AMYOTROPHY [None]
  - ANAEMIA [None]
  - AREFLEXIA [None]
  - ASCITES [None]
  - ASTHENIA [None]
  - BRAIN OEDEMA [None]
  - COMA [None]
  - CYTOLYTIC HEPATITIS [None]
  - CYTOMEGALOVIRUS ANTIBODY POSITIVE [None]
  - CYTOMEGALOVIRUS INFECTION [None]
  - DISSEMINATED INTRAVASCULAR COAGULATION [None]
  - DRUG ERUPTION [None]
  - ENCEPHALOPATHY [None]
  - EPSTEIN-BARR VIRUS ANTIBODY POSITIVE [None]
  - FATIGUE [None]
  - HAEMATEMESIS [None]
  - HAEMODIALYSIS [None]
  - HAEMORRHAGE [None]
  - HEPARIN-INDUCED THROMBOCYTOPENIA [None]
  - HEPATIC FAILURE [None]
  - HEPATIC NECROSIS [None]
  - HEPATITIS CHOLESTATIC [None]
  - HEPATITIS FULMINANT [None]
  - HEPATITIS TOXIC [None]
  - HYPERSENSITIVITY [None]
  - IMMUNE SYSTEM DISORDER [None]
  - LEUKOCYTOSIS [None]
  - LUNG INFECTION [None]
  - MULTI-ORGAN FAILURE [None]
  - NEUROMYOPATHY [None]
  - PERIPHERAL MOTOR NEUROPATHY [None]
  - PLEURAL EFFUSION [None]
  - POLYNEUROPATHY [None]
  - POST PROCEDURAL COMPLICATION [None]
  - PROTHROMBIN TIME SHORTENED [None]
  - PURPURA [None]
  - PYELONEPHRITIS [None]
  - PYREXIA [None]
  - RASH GENERALISED [None]
  - RASH MACULO-PAPULAR [None]
  - STAPHYLOCOCCAL INFECTION [None]
  - TACHYCARDIA [None]
  - TOXIC SKIN ERUPTION [None]
  - VIRAL RASH [None]
